FAERS Safety Report 18358076 (Version 1)
Quarter: 2020Q4

REPORT INFORMATION
  Report Type: Other
  Country: US (occurrence: US)
  Receive Date: 20201007
  Receipt Date: 20201007
  Transmission Date: 20210114
  Serious: Yes (Hospitalization, Other)
  Sender: FDA-Public Use
  Company Number: US-ROCHE-2689110

PATIENT
  Sex: Male

DRUGS (1)
  1. ESBRIET [Suspect]
     Active Substance: PIRFENIDONE
     Indication: IDIOPATHIC PULMONARY FIBROSIS
     Dosage: 3 PILLS EVERY BREAKFAST, LUNCH AND DINNER
     Route: 048

REACTIONS (3)
  - Dizziness [Not Recovered/Not Resolved]
  - Lung disorder [Unknown]
  - Neoplasm malignant [Unknown]
